FAERS Safety Report 5900442-9 (Version None)
Quarter: 2008Q3

REPORT INFORMATION
  Report Type: 
  Country: None (occurrence: None)
  Receive Date: 20080926
  Receipt Date: 20080919
  Transmission Date: 20090109
  Serious: Yes (Hospitalization)
  Sender: FDA-Public Use
  Company Number: US-AMGEN-US300783

PATIENT
  Sex: Male
  Weight: 84 kg

DRUGS (10)
  1. PANITUMUMAB [Suspect]
     Indication: OESOPHAGEAL CARCINOMA
     Route: 042
     Dates: start: 20080708
  2. EPIRUBICIN [Suspect]
     Indication: CHEMOTHERAPY
     Route: 042
     Dates: start: 20080708
  3. OXALIPLATIN [Suspect]
     Indication: CHEMOTHERAPY
     Route: 042
     Dates: start: 20080708
  4. XELODA [Suspect]
     Route: 048
     Dates: start: 20080708
  5. ATIVAN [Concomitant]
     Route: 065
     Dates: start: 20080708
  6. CLEOCIN [Concomitant]
     Route: 065
     Dates: start: 20080729
  7. COMPAZINE [Concomitant]
     Route: 065
     Dates: start: 20080708
  8. FERROUS SULFATE TAB [Concomitant]
     Route: 065
     Dates: start: 20080729
  9. POTASSIUM CHLORIDE [Concomitant]
     Route: 065
     Dates: start: 20080729
  10. ZOFRAN [Concomitant]
     Route: 065
     Dates: start: 20080708

REACTIONS (2)
  - DIARRHOEA [None]
  - NEUTROPENIA [None]
